FAERS Safety Report 15962723 (Version 4)
Quarter: 2019Q1

REPORT INFORMATION
  Report Type: Spontaneous
  Country: TR (occurrence: TR)
  Receive Date: 20190214
  Receipt Date: 20190316
  Transmission Date: 20190417
  Serious: Yes (Life-Threatening, Hospitalization, Other)
  Sender: FDA-Public Use
  Company Number: PHHY2019TR033696

PATIENT
  Age: 73 Year
  Sex: Male

DRUGS (1)
  1. TEGRETOL [Suspect]
     Active Substance: CARBAMAZEPINE
     Indication: TRIGEMINAL NEURALGIA
     Dosage: 2 DF, QD
     Route: 065
     Dates: end: 20190207

REACTIONS (10)
  - Hepatic enzyme abnormal [Recovered/Resolved]
  - Neuralgia [Unknown]
  - Rash [Recovered/Resolved]
  - Hypersensitivity [Recovered/Resolved]
  - Hyponatraemia [Recovered/Resolved]
  - Drug ineffective [Unknown]
  - Loss of consciousness [Recovered/Resolved]
  - Coma [Recovered/Resolved]
  - Blood sodium abnormal [Recovering/Resolving]
  - Enuresis [Unknown]
